FAERS Safety Report 6628001-3 (Version None)
Quarter: 2010Q1

REPORT INFORMATION
  Report Type: 
  Country: None (occurrence: None)
  Receive Date: 20100311
  Receipt Date: 20090526
  Transmission Date: 20100710
  Serious: No
  Sender: FDA-Public Use
  Company Number: A0786065A

PATIENT
  Age: 46 Year
  Sex: Female

DRUGS (1)
  1. NICORETTE [Suspect]
     Dates: end: 20090520

REACTIONS (1)
  - ORAL MUCOSAL EXFOLIATION [None]
